FAERS Safety Report 5288175-6 (Version None)
Quarter: 2007Q2

REPORT INFORMATION
  Report Type: 
  Country: None (occurrence: None)
  Receive Date: 20070402
  Receipt Date: 20070402
  Transmission Date: 20071010
  Serious: Yes (Hospitalization)
  Sender: FDA-Public Use
  Company Number: None

PATIENT
  Age: 44 Year
  Sex: Male
  Weight: 77 kg

DRUGS (2)
  1. AMOXICILLIN [Suspect]
     Indication: TOOTH ABSCESS
     Dosage: ONE CAPSULE TID PO
     Route: 048
     Dates: start: 20070210, end: 20070217
  2. AMOXICILLIN + CLAVULANATE POTASSIUM [Suspect]
     Indication: SINUSITIS
     Dosage: ONE BID PO
     Route: 048
     Dates: start: 20070217, end: 20070301

REACTIONS (7)
  - GINGIVAL PAIN [None]
  - INFLUENZA [None]
  - LYMPHADENOPATHY [None]
  - MENINGITIS ASEPTIC [None]
  - NO THERAPEUTIC RESPONSE [None]
  - RASH MACULO-PAPULAR [None]
  - SINUSITIS [None]
